FAERS Safety Report 9250488 (Version 1)
Quarter: 2013Q1

REPORT INFORMATION
  Report Type: Spontaneous
  Country: US (occurrence: None)
  Receive Date: 20130305
  Receipt Date: 20130305
  Transmission Date: 20140127
  Serious: Yes (Other)
  Sender: FDA-Public Use
  Company Number: 163-21880-12093067

PATIENT
  Age: 67 Year
  Sex: Female

DRUGS (5)
  1. REVLIMID [Suspect]
     Indication: PLASMA CELL MYELOMA IN REMISSION
     Dosage: 10 MG, 28 IN 28 D, PO?TEMPORARILY INTERRUPTED
     Route: 048
     Dates: start: 200909
  2. MULTIPLE VITAMINS (MULTIPLE VITAMINS) [Concomitant]
  3. STOOL SOFTENER (DOCUSATE SODIUM) [Concomitant]
  4. ONDANSETRON HCL (ONDANSETRON HYDROCHLORIDE) [Concomitant]
  5. OXYCODONE HCL (OXYCODONE HYDROCHLORIDE) [Concomitant]

REACTIONS (1)
  - Neutropenia [None]
